FAERS Safety Report 5802587-0 (Version None)
Quarter: 2008Q3

REPORT INFORMATION
  Report Type: 
  Country: None (occurrence: None)
  Receive Date: 20080708
  Receipt Date: 20080624
  Transmission Date: 20090109
  Serious: Yes (Death, Hospitalization)
  Sender: FDA-Public Use
  Company Number: ZA-ELI_LILLY_AND_COMPANY-ZA200802000458

PATIENT
  Sex: Female
  Weight: 39 kg

DRUGS (9)
  1. CAPASTAT SULFATE [Suspect]
     Indication: TUBERCULOSIS
     Dosage: 750 MG, DAILY (1/D)
     Route: 030
     Dates: start: 20071012
  2. TERIZIDONE [Concomitant]
     Indication: TUBERCULOSIS
     Dosage: 750 MG, DAILY (1/D)
     Route: 048
     Dates: end: 20071116
  3. P.A.S. [Concomitant]
     Indication: TUBERCULOSIS
     Dosage: 4 G, 2/D
     Route: 048
     Dates: end: 20071116
  4. ETHAMBUTOL HYDROCHLORIDE [Concomitant]
     Indication: TUBERCULOSIS
     Dosage: 800 MG, DAILY (1/D)
     Route: 048
     Dates: end: 20071116
  5. ETHIONAMIDE [Concomitant]
     Indication: TUBERCULOSIS
     Dosage: 500 MG, DAILY (1/D)
     Route: 065
     Dates: end: 20071116
  6. AUGMENTIN /00852501/ [Concomitant]
     Indication: TUBERCULOSIS
     Dosage: 1 G, 2/D
     Route: 048
     Dates: start: 20071012, end: 20071116
  7. CLARITHROMYCIN [Concomitant]
     Indication: TUBERCULOSIS
     Dosage: 500 MG, 2/D
     Route: 048
     Dates: start: 20071012, end: 20071116
  8. ENALAPRIL MALEATE [Concomitant]
     Indication: HYPERTENSION
     Dosage: 5 MG, 2/D
     Route: 048
     Dates: start: 20020101, end: 20071116
  9. HYDROCHLOROTHIAZIDE [Concomitant]
     Indication: HYPERTENSION
     Dosage: 12.5 MG, DAILY (1/D)
     Route: 048
     Dates: start: 20020101, end: 20071116

REACTIONS (1)
  - NEPHROPATHY TOXIC [None]
